FAERS Safety Report 5408296-4 (Version None)
Quarter: 2007Q3

REPORT INFORMATION
  Report Type: 
  Country: None (occurrence: None)
  Receive Date: 20070806
  Receipt Date: 20070806
  Transmission Date: 20080115
  Serious: No
  Sender: FDA-Public Use
  Company Number: None

PATIENT
  Age: 53 Year
  Sex: Male

DRUGS (2)
  1. IBUPROFEN [Suspect]
     Dosage: PO
     Route: 048
     Dates: start: 20060606, end: 20070320
  2. IBUPROFEN [Suspect]
     Dosage: PO
     Route: 048
     Dates: start: 20060606, end: 20070320

REACTIONS (4)
  - GASTRIC HAEMORRHAGE [None]
  - GASTRITIS [None]
  - NAUSEA [None]
  - VOMITING [None]
